FAERS Safety Report 4455858-7 (Version None)
Quarter: 2004Q3

REPORT INFORMATION
  Report Type: 
  Country: None (occurrence: None)
  Receive Date: 20040922
  Receipt Date: 20040915
  Transmission Date: 20050211
  Serious: Yes (Other)
  Sender: FDA-Public Use
  Company Number: BE-MERCK-0409BEL00016

PATIENT

DRUGS (1)
  1. SINGULAIR [Suspect]
     Route: 048
     Dates: start: 20040101

REACTIONS (1)
  - APLASTIC ANAEMIA [None]
